FAERS Safety Report 8418764-9 (Version None)
Quarter: 2012Q2

REPORT INFORMATION
  Report Type: 
  Country: None (occurrence: None)
  Receive Date: 20120607
  Receipt Date: 20120601
  Transmission Date: 20120825
  Serious: Yes (Hospitalization, Other)
  Sender: FDA-Public Use
  Company Number: US-B.I. PHARMACEUTICALS,INC./RIDGEFIELD-2012-BP-13012PF

PATIENT
  Sex: Female

DRUGS (3)
  1. SPIRIVA [Suspect]
  2. PROTONIX [Suspect]
  3. LYRICA [Suspect]

REACTIONS (3)
  - HOSPITALISATION [None]
  - CEREBROVASCULAR ACCIDENT [None]
  - CONFUSIONAL STATE [None]
